FAERS Safety Report 21610846 (Version 2)
Quarter: 2022Q4

REPORT INFORMATION
  Report Type: Spontaneous
  Country: US (occurrence: US)
  Receive Date: 20221117
  Receipt Date: 20221209
  Transmission Date: 20230112
  Serious: Yes (Death, Hospitalization)
  Sender: FDA-Public Use
  Company Number: US-TEVA-2022-US-2825299

PATIENT
  Age: 16 Year
  Sex: Female

DRUGS (3)
  1. DEFERASIROX [Suspect]
     Active Substance: DEFERASIROX
     Indication: Thalassaemia
     Route: 065
  2. SODIUM CHLORIDE [Suspect]
     Active Substance: SODIUM CHLORIDE
     Indication: Brain oedema
     Route: 065
  3. MANNITOL [Suspect]
     Active Substance: MANNITOL
     Indication: Brain oedema
     Route: 065

REACTIONS (7)
  - Hyperammonaemia [Fatal]
  - Drug ineffective [Fatal]
  - Hepatic function abnormal [Fatal]
  - Agitation [Unknown]
  - Hypotension [Unknown]
  - Tachycardia [Unknown]
  - Muscle rigidity [Unknown]
